FAERS Safety Report 6307081-9 (Version None)
Quarter: 2009Q3

REPORT INFORMATION
  Report Type: 
  Country: None (occurrence: None)
  Receive Date: 20090812
  Receipt Date: 20090805
  Transmission Date: 20100115
  Serious: Yes (Hospitalization)
  Sender: FDA-Public Use
  Company Number: US-GENENTECH-288367

PATIENT
  Sex: Female

DRUGS (6)
  1. TRASTUZUMAB [Suspect]
     Indication: BREAST CANCER
     Dosage: 550 MG, Q3W
     Route: 042
     Dates: start: 20090430
  2. CARBOPLATIN [Suspect]
     Indication: BREAST CANCER
     Dosage: 783 MG, Q3W
     Route: 042
     Dates: start: 20090430
  3. DOCETAXEL [Suspect]
     Indication: BREAST CANCER
     Dosage: 151 MG, Q3W
     Route: 042
     Dates: start: 20090430
  4. HIDROCHLOROTHIAZIDE [Concomitant]
     Indication: DRUG USE FOR UNKNOWN INDICATION
     Dosage: UNK
     Dates: start: 20090610
  5. ATENOL [Concomitant]
     Indication: DRUG USE FOR UNKNOWN INDICATION
     Dosage: UNK
     Dates: start: 20090528
  6. BENAZEPRIL HYDROCHLORIDE [Concomitant]
     Indication: DRUG USE FOR UNKNOWN INDICATION
     Dosage: UNK
     Dates: start: 20090101

REACTIONS (1)
  - DEHYDRATION [None]
